FAERS Safety Report 4970447-3 (Version None)
Quarter: 2006Q2

REPORT INFORMATION
  Report Type: 
  Country: None (occurrence: None)
  Receive Date: 20060406
  Receipt Date: 20060329
  Transmission Date: 20061013
  Serious: Yes (Hospitalization)
  Sender: FDA-Public Use
  Company Number: 2005BI013228

PATIENT
  Age: 58 Year
  Sex: Female
  Weight: 54.8 kg

DRUGS (7)
  1. ZEVALIN [Suspect]
     Indication: NON-HODGKIN'S LYMPHOMA
     Dosage: 3.5 MCI; 1X; IV
     Route: 042
     Dates: start: 20050518, end: 20050518
  2. ZEVALIN [Suspect]
     Indication: NON-HODGKIN'S LYMPHOMA
     Dosage: 16.4 MCI; 1X; IV
     Route: 042
     Dates: start: 20050524, end: 20050524
  3. BLOPRESS [Concomitant]
  4. RITUXAN [Concomitant]
  5. ....................... [Concomitant]
  6. ADONA [Concomitant]
  7. CIPROXAN [Concomitant]

REACTIONS (5)
  - HAEMOGLOBIN DECREASED [None]
  - INFECTION [None]
  - NEUTROPHIL COUNT DECREASED [None]
  - PLATELET COUNT DECREASED [None]
  - WHITE BLOOD CELL COUNT DECREASED [None]
